FAERS Safety Report 5456793-8 (Version None)
Quarter: 2007Q3

REPORT INFORMATION
  Report Type: 
  Country: None (occurrence: None)
  Receive Date: 20070918
  Receipt Date: 20070906
  Transmission Date: 20080115
  Serious: Yes (Other)
  Sender: FDA-Public Use
  Company Number: US-PFIZER INC-2007075244

PATIENT

DRUGS (2)
  1. ZOLOFT [Suspect]
  2. CHANTIX [Suspect]

REACTIONS (2)
  - COGNITIVE DISORDER [None]
  - PSYCHOTIC DISORDER [None]
